FAERS Safety Report 8450178-8 (Version None)
Quarter: 2012Q2

REPORT INFORMATION
  Report Type: 
  Country: None (occurrence: None)
  Receive Date: 20120620
  Receipt Date: 20120615
  Transmission Date: 20120825
  Serious: Yes (Death)
  Sender: FDA-Public Use
  Company Number: US-CELGENEUS-163-21880-12062467

PATIENT
  Sex: Female
  Weight: 50.848 kg

DRUGS (9)
  1. KEFLEX [Concomitant]
     Dosage: 500 MILLIGRAM
     Route: 065
  2. BYSTOLIC [Concomitant]
     Dosage: 2.5 MILLIGRAM
     Route: 065
  3. ZOMETA [Concomitant]
     Route: 041
  4. REVLIMID [Suspect]
     Dosage: 5 MILLIGRAM
     Route: 048
     Dates: start: 20120201, end: 20120510
  5. AVALIDE [Concomitant]
     Dosage: 150MG-12.5MG
     Route: 065
  6. REVLIMID [Suspect]
     Dosage: 10 MILLIGRAM
     Route: 048
     Dates: start: 20110501, end: 20110101
  7. REVLIMID [Suspect]
     Indication: MULTIPLE MYELOMA
     Dosage: 25 MILLIGRAM
     Route: 048
     Dates: start: 20100129, end: 20100101
  8. PREVACID [Concomitant]
     Dosage: 30 MILLIGRAM
     Route: 065
  9. NEURONTIN [Concomitant]
     Dosage: 100 MILLIGRAM
     Route: 065

REACTIONS (1)
  - DEATH [None]
